FAERS Safety Report 12093530 (Version 1)
Quarter: 2016Q1

REPORT INFORMATION
  Report Type: Spontaneous
  Country: US (occurrence: None)
  Receive Date: 20160218
  Receipt Date: 20160218
  Transmission Date: 20160526
  Serious: No
  Sender: FDA-Public Use
  Company Number: None

PATIENT
  Age: 54 Year
  Sex: Female

DRUGS (1)
  1. BREO ELLIPTA [Suspect]
     Active Substance: FLUTICASONE FUROATE\VILANTEROL TRIFENATATE

REACTIONS (7)
  - Drug effect decreased [None]
  - Influenza like illness [None]
  - Cough [None]
  - Dyspnoea [None]
  - Headache [None]
  - Palpitations [None]
  - Muscle strain [None]

NARRATIVE: CASE EVENT DATE: 20151201
